FAERS Safety Report 6695093-5 (Version None)
Quarter: 2010Q2

REPORT INFORMATION
  Report Type: 
  Country: None (occurrence: None)
  Receive Date: 20100423
  Receipt Date: 20100419
  Transmission Date: 20101027
  Serious: Yes (Death)
  Sender: FDA-Public Use
  Company Number: PHHY2010JP24871

PATIENT
  Sex: Female

DRUGS (6)
  1. ZOLEDRONATE T29581+ [Suspect]
     Indication: MULTIPLE MYELOMA
     Dosage: 4MG (SINGLE DOSE)
     Route: 042
     Dates: start: 20080227, end: 20080227
  2. ZOLEDRONATE T29581+ [Suspect]
     Dosage: 4MG (SINGLE DOSE)
     Route: 042
     Dates: start: 20080416, end: 20080416
  3. SLOW-K [Concomitant]
     Dosage: 600 MG, UNK
     Route: 048
     Dates: start: 20080227
  4. NORVASC [Concomitant]
     Dosage: 5 MG, UNK
     Dates: start: 20080227
  5. HYPEN [Concomitant]
     Dosage: 400 MG, UNK
     Dates: start: 20080227
  6. NEUROTROPIN [Concomitant]
     Dosage: 16 DF, UNK
     Dates: start: 20080227

REACTIONS (1)
  - DEATH [None]
